FAERS Safety Report 24793586 (Version 2)
Quarter: 2025Q1

REPORT INFORMATION
  Report Type: Spontaneous
  Country: US (occurrence: US)
  Receive Date: 20241231
  Receipt Date: 20250103
  Transmission Date: 20250409
  Serious: Yes (Other)
  Sender: PFIZER
  Company Number: US-PFIZER INC-202400322757

PATIENT
  Age: 64 Year
  Sex: Female

DRUGS (2)
  1. EUCRISA [Suspect]
     Active Substance: CRISABOROLE
     Dates: start: 2019
  2. EUCRISA [Suspect]
     Active Substance: CRISABOROLE
     Dates: start: 2020

REACTIONS (3)
  - Neoplasm malignant [Unknown]
  - Skin discolouration [Unknown]
  - Scar [Unknown]

NARRATIVE: CASE EVENT DATE: 20200101
